FAERS Safety Report 8066863-6 (Version None)
Quarter: 2012Q1

REPORT INFORMATION
  Report Type: 
  Country: None (occurrence: None)
  Receive Date: 20120124
  Receipt Date: 20120119
  Transmission Date: 20120608
  Serious: Yes (Death, Hospitalization, Other)
  Sender: FDA-Public Use
  Company Number: PHHY2011BR93925

PATIENT
  Sex: Female

DRUGS (2)
  1. DIOVAN [Suspect]
     Indication: HYPERTENSION
     Dosage: 1 TABLET (80MG) DAILY
     Route: 048
  2. DRUG THERAPY NOS [Concomitant]
     Dosage: UNK

REACTIONS (7)
  - MULTI-ORGAN FAILURE [None]
  - PNEUMONIA [None]
  - INFECTION [None]
  - FALL [None]
  - ARRHYTHMIA [None]
  - CARDIAC FAILURE [None]
  - HEAD INJURY [None]
